FAERS Safety Report 6676431-6 (Version None)
Quarter: 2010Q2

REPORT INFORMATION
  Report Type: 
  Country: None (occurrence: None)
  Receive Date: 20100412
  Receipt Date: 20100331
  Transmission Date: 20101027
  Serious: Yes (Hospitalization)
  Sender: FDA-Public Use
  Company Number: PHEH2010US02685

PATIENT
  Sex: Male

DRUGS (3)
  1. GLEEVEC [Suspect]
     Indication: GASTROINTESTINAL STROMAL TUMOUR
     Dosage: 400 MG,DAILY
     Route: 048
     Dates: start: 20090806, end: 20091228
  2. URSODIOL [Concomitant]
     Indication: BLOOD BILIRUBIN INCREASED
  3. PRAVASTATIN [Concomitant]

REACTIONS (2)
  - CHROMATURIA [None]
  - JAUNDICE [None]
